FAERS Safety Report 21809340 (Version 2)
Quarter: 2023Q1

REPORT INFORMATION
  Report Type: Spontaneous
  Country: NL (occurrence: NL)
  Receive Date: 20230103
  Receipt Date: 20230116
  Transmission Date: 20230417
  Serious: Yes (Hospitalization, Other)
  Sender: FDA-Public Use
  Company Number: NL-LRB-00858705

PATIENT
  Sex: Female
  Weight: 37 kg

DRUGS (1)
  1. ETHINYL ESTRADIOL\LEVONORGESTREL [Suspect]
     Active Substance: ETHINYL ESTRADIOL\LEVONORGESTREL
     Indication: Heavy menstrual bleeding
     Dosage: 1 DOSAGE FORM, ONCE A DAY(1 KEER PER DAG 1 STUK)
     Route: 065
     Dates: start: 20220510, end: 20220704

REACTIONS (1)
  - Deep vein thrombosis [Recovered/Resolved]
